FAERS Safety Report 10529907 (Version 1)
Quarter: 2014Q4

REPORT INFORMATION
  Report Type: Spontaneous
  Country: US (occurrence: None)
  Receive Date: 20141020
  Receipt Date: 20141020
  Transmission Date: 20150528
  Serious: Yes (Disabling)
  Sender: FDA-Public Use
  Company Number: None

PATIENT
  Age: 82 Year
  Sex: Male
  Weight: 72.58 kg

DRUGS (11)
  1. LOTEMAX [Concomitant]
     Active Substance: LOTEPREDNOL ETABONATE
  2. LUMIGAN [Concomitant]
     Active Substance: BIMATOPROST
  3. FOLIC ACID. [Concomitant]
     Active Substance: FOLIC ACID
  4. FINASTERIDE. [Concomitant]
     Active Substance: FINASTERIDE
  5. MACULAR SHIELD [Concomitant]
  6. CAROBIGAN [Concomitant]
  7. VITAMIN D3 [Concomitant]
     Active Substance: CHOLECALCIFEROL
  8. METHOTREXATE [Suspect]
     Active Substance: METHOTREXATE
     Indication: RHEUMATOID ARTHRITIS
     Dosage: 2.5 MG 6 (SIX) PILLS WEEKLY BY MOUTH
     Route: 048
     Dates: start: 20140522, end: 20140529
  9. PREDNISONE. [Concomitant]
     Active Substance: PREDNISONE
  10. TAMSULOSIN [Concomitant]
     Active Substance: TAMSULOSIN
  11. ACETAZOLAMIDE. [Concomitant]
     Active Substance: ACETAZOLAMIDE

REACTIONS (2)
  - Visual acuity reduced [None]
  - Impaired driving ability [None]

NARRATIVE: CASE EVENT DATE: 20140529
